FAERS Safety Report 9240367 (Version 1)
Quarter: 2013Q2

REPORT INFORMATION
  Report Type: Spontaneous
  Country: BR (occurrence: None)
  Receive Date: 20130417
  Receipt Date: 20130417
  Transmission Date: 20140414
  Serious: Yes (Other)
  Sender: FDA-Public Use
  Company Number: DSJ-2013-07232

PATIENT
  Age: 61 Year
  Sex: Male
  Weight: 93 kg

DRUGS (5)
  1. BENICAR ANLO (OLMESARTAN MEDOXOMIL, AMLODIPINE BESILATE) (TABLET) (OLMESARTAN MEDOXOMIL, AMLODIPINE) [Suspect]
     Indication: HYPERTENSION
     Dosage: 1 IN 1 D
     Route: 048
     Dates: start: 201303
  2. ATENOLOL (ATENOLOL) (ATENOLOL) [Concomitant]
  3. METFORMIN (METFORMIN) (METFORMIN) [Concomitant]
  4. GLIBENCLAMIDE (GLIBENCLAMIDE) [Concomitant]
  5. DUTASTERIDE\TAMSULOSIN [Suspect]

REACTIONS (1)
  - Blood pressure increased [None]
